FAERS Safety Report 15810937 (Version 1)
Quarter: 2019Q1

REPORT INFORMATION
  Report Type: Spontaneous
  Country: US (occurrence: US)
  Receive Date: 20190111
  Receipt Date: 20190111
  Transmission Date: 20190417
  Serious: Yes (Death, Hospitalization)
  Sender: FDA-Public Use
  Company Number: US-JNJFOC-20190101243

PATIENT
  Age: 13 Year
  Sex: Female

DRUGS (2)
  1. IBUPROFEN. [Suspect]
     Active Substance: IBUPROFEN
     Route: 048
  2. IBUPROFEN. [Suspect]
     Active Substance: IBUPROFEN
     Indication: SUICIDE ATTEMPT
     Route: 048

REACTIONS (16)
  - Blood creatinine increased [Fatal]
  - Blood bicarbonate decreased [Fatal]
  - International normalised ratio increased [Fatal]
  - White blood cell count increased [Fatal]
  - Rectal haemorrhage [Fatal]
  - Vomiting [Fatal]
  - Pulmonary congestion [Fatal]
  - Activated partial thromboplastin time prolonged [Fatal]
  - Transaminases increased [Fatal]
  - Blood urea increased [Fatal]
  - Toxicity to various agents [Fatal]
  - Hyperthermia [Fatal]
  - Brain injury [Fatal]
  - Blood potassium increased [Fatal]
  - Blood pH decreased [Fatal]
  - Blood calcium decreased [Fatal]
